FAERS Safety Report 7833694-9 (Version None)
Quarter: 2011Q4

REPORT INFORMATION
  Report Type: 
  Country: None (occurrence: None)
  Receive Date: 20111024
  Receipt Date: 20111014
  Transmission Date: 20120403
  Serious: Yes (Hospitalization, Other)
  Sender: FDA-Public Use
  Company Number: US-PFIZER INC-2011246541

PATIENT
  Age: 50 Year
  Sex: Female

DRUGS (3)
  1. HYDROCORTISONE SODIUM SUCCINATE [Suspect]
     Indication: HYPERSENSITIVITY
     Dosage: 125 MG, UNK
     Route: 042
  2. METOPROLOL SUCCINATE [Concomitant]
     Indication: HYPERTENSION
     Dosage: 25 MG, 2X/DAY
  3. AMLODIPINE [Concomitant]
     Indication: HYPERTENSION
     Dosage: 5 MG, DAILY

REACTIONS (9)
  - NON-CARDIOGENIC PULMONARY OEDEMA [None]
  - BLOOD GLUCOSE INCREASED [None]
  - BLOOD CATECHOLAMINES INCREASED [None]
  - LACTIC ACIDOSIS [None]
  - HYPERTENSIVE CRISIS [None]
  - CARDIOGENIC SHOCK [None]
  - RENAL FAILURE ACUTE [None]
  - MYOCARDITIS [None]
  - RENAL TUBULAR NECROSIS [None]
